FAERS Safety Report 7393806-0 (Version None)
Quarter: 2011Q1

REPORT INFORMATION
  Report Type: 
  Country: None (occurrence: None)
  Receive Date: 20110330
  Receipt Date: 20110330
  Transmission Date: 20110831
  Serious: Yes (Other)
  Sender: FDA-Public Use
  Company Number: None

PATIENT
  Age: 70 Year
  Sex: Male
  Weight: 68.9467 kg

DRUGS (1)
  1. NYSTATIN [Suspect]
     Dosage: APPLY TO TOES ONCE A DAY, BEDTIM TOP
     Route: 061
     Dates: start: 20101112, end: 20110310

REACTIONS (3)
  - ASPARTATE AMINOTRANSFERASE ABNORMAL [None]
  - ALANINE AMINOTRANSFERASE ABNORMAL [None]
  - LIVER DISORDER [None]
